FAERS Safety Report 10489064 (Version 4)
Quarter: 2014Q4

REPORT INFORMATION
  Report Type: Spontaneous
  Country: DE (occurrence: DE)
  Receive Date: 20141002
  Receipt Date: 20141105
  Transmission Date: 20150528
  Serious: Yes (Life-Threatening, Hospitalization)
  Sender: FDA-Public Use
  Company Number: DE-JNJFOC-20140923358

PATIENT
  Age: 59 Year
  Sex: Male
  Weight: 84 kg

DRUGS (13)
  1. PANTOPRAZOLE [Concomitant]
     Active Substance: PANTOPRAZOLE SODIUM
     Dosage: ONCE ONE DAY
     Route: 048
  2. XARELTO [Suspect]
     Active Substance: RIVAROXABAN
     Indication: CEREBROVASCULAR ACCIDENT PROPHYLAXIS
     Route: 048
     Dates: start: 201212
  3. BISOPROLOL RATIOPHARM [Concomitant]
     Active Substance: BISOPROLOL
     Route: 065
  4. FOLSAN [Concomitant]
     Active Substance: FOLIC ACID
     Dosage: ONCE IN THE MORNING
     Route: 048
  5. TORASEMID [Concomitant]
     Active Substance: TORSEMIDE
     Route: 048
  6. TORASEMID [Concomitant]
     Active Substance: TORSEMIDE
     Route: 048
  7. ATORVASTATIN [Suspect]
     Active Substance: ATORVASTATIN
     Indication: PRODUCT USED FOR UNKNOWN INDICATION
     Dosage: HOUR OF SLEEP
     Route: 048
  8. RAMIPRIL-RATIOPHARM [Concomitant]
     Dosage: ONCE IN THE MORNING
     Route: 065
  9. TORASEMID [Concomitant]
     Active Substance: TORSEMIDE
     Route: 048
  10. SPIRONOLACTONE. [Concomitant]
     Active Substance: SPIRONOLACTONE
     Route: 065
  11. FERRO-SANOL DUODENAL [Concomitant]
     Active Substance: FERROUS SULFATE\GLYCINE
     Route: 048
  12. XARELTO [Suspect]
     Active Substance: RIVAROXABAN
     Indication: CORONARY ARTERY DISEASE
     Route: 048
     Dates: start: 201212
  13. XARELTO [Suspect]
     Active Substance: RIVAROXABAN
     Indication: ATRIAL FIBRILLATION
     Route: 048
     Dates: start: 201212

REACTIONS (4)
  - Anaemia [Not Recovered/Not Resolved]
  - Haemoglobin decreased [Unknown]
  - Contrast media reaction [Unknown]
  - Occult blood positive [Unknown]

NARRATIVE: CASE EVENT DATE: 20140618
